FAERS Safety Report 7789377-7 (Version None)
Quarter: 2011Q3

REPORT INFORMATION
  Report Type: 
  Country: None (occurrence: None)
  Receive Date: 20110930
  Receipt Date: 20110926
  Transmission Date: 20111222
  Serious: Yes (Hospitalization)
  Sender: FDA-Public Use
  Company Number: IT-GLAXOSMITHKLINE-B0751908A

PATIENT
  Sex: Male

DRUGS (2)
  1. ISOPTIN [Suspect]
     Indication: ATRIAL FIBRILLATION
     Dosage: 240MG PER DAY
     Route: 048
     Dates: start: 19960906, end: 20110906
  2. LANOXIN [Suspect]
     Indication: ATRIAL FIBRILLATION
     Dosage: 125MCG PER DAY
     Route: 048
     Dates: start: 19960906, end: 20110906

REACTIONS (1)
  - NODAL ARRHYTHMIA [None]
